FAERS Safety Report 9257776 (Version 1)
Quarter: 2013Q1

REPORT INFORMATION
  Report Type: Spontaneous
  Country: US (occurrence: None)
  Receive Date: 20121212
  Receipt Date: 20121212
  Transmission Date: 20140127
  Serious: No
  Sender: FDA-Public Use
  Company Number: 1209USA009285

PATIENT
  Age: 68 Year
  Sex: Female

DRUGS (3)
  1. VICTRELIS [Suspect]
     Indication: HEPATITIS C
     Route: 048
     Dates: start: 20120914, end: 2012
  2. REBETOL [Suspect]
     Indication: HEPATITIS C
     Route: 048
     Dates: start: 20120817, end: 2012
  3. PEGASYS (PEGINTERFERON ALFA-2A) [Concomitant]

REACTIONS (7)
  - Abdominal distension [None]
  - Anaemia [None]
  - Diarrhoea [None]
  - Platelet count decreased [None]
  - Cough [None]
  - Insomnia [None]
  - Myalgia [None]
